FAERS Safety Report 5976337-1 (Version None)
Quarter: 2008Q4

REPORT INFORMATION
  Report Type: 
  Country: None (occurrence: None)
  Receive Date: 20081202
  Receipt Date: 20081111
  Transmission Date: 20090506
  Serious: No
  Sender: FDA-Public Use
  Company Number: US-B.I. PHARMACEUTICALS,INC./RIDGEFIELD-2008-BP-17042BP

PATIENT
  Age: 66 Year
  Sex: Female

DRUGS (1)
  1. ZANTAC [Suspect]
     Indication: HIATUS HERNIA
     Dosage: 150MG
     Route: 048
     Dates: start: 20081101, end: 20081101

REACTIONS (1)
  - DYSPEPSIA [None]
